FAERS Safety Report 9055286 (Version 1)
Quarter: 2013Q1

REPORT INFORMATION
  Report Type: Spontaneous
  Country: US (occurrence: US)
  Receive Date: 20130206
  Receipt Date: 20130206
  Transmission Date: 20140127
  Serious: Yes (Other)
  Sender: FDA-Public Use
  Company Number: US-009507513-1301USA013885

PATIENT
  Sex: 0

DRUGS (3)
  1. VICTRELIS [Suspect]
     Dosage: UNK
     Route: 048
  2. PEGINTRON [Suspect]
     Dosage: UNK
     Route: 058
  3. REBETOL [Suspect]
     Dosage: UNK
     Route: 048

REACTIONS (1)
  - Blindness unilateral [Unknown]
